FAERS Safety Report 4968768-3 (Version None)
Quarter: 2006Q2

REPORT INFORMATION
  Report Type: 
  Country: None (occurrence: None)
  Receive Date: 20060411
  Receipt Date: 20060331
  Transmission Date: 20061013
  Serious: Yes (Hospitalization)
  Sender: FDA-Public Use
  Company Number: FR-JNJFOC-20060400050

PATIENT
  Age: 62 Year
  Sex: Male

DRUGS (7)
  1. RISPERDAL [Suspect]
     Indication: DRUG USE FOR UNKNOWN INDICATION
     Route: 048
  2. TARKA [Interacting]
     Route: 048
  3. TARKA [Interacting]
     Indication: DRUG USE FOR UNKNOWN INDICATION
     Route: 048
  4. LASILIX [Interacting]
     Indication: DRUG USE FOR UNKNOWN INDICATION
     Route: 048
  5. REMINYL [Concomitant]
  6. KARDEGIC [Concomitant]
  7. SERMION [Concomitant]

REACTIONS (3)
  - DRUG INTERACTION [None]
  - FALL [None]
  - HYPOTENSION [None]
